FAERS Safety Report 25074212 (Version 1)
Quarter: 2025Q1

REPORT INFORMATION
  Report Type: Report from Study
  Country: US (occurrence: US)
  Receive Date: 20250313
  Receipt Date: 20250313
  Transmission Date: 20250409
  Serious: No
  Sender: ACADIA PHARMACEUTICALS
  Company Number: US-ACADIA PHARMACEUTICALS INC.-ACA-2025-PIM-002670

PATIENT
  Sex: Male

DRUGS (21)
  1. NUPLAZID [Suspect]
     Active Substance: PIMAVANSERIN TARTRATE
     Indication: Parkinson^s disease
     Dosage: 10 MILLIGRAM, QD
     Route: 048
  2. RASAGILINE MESYLATE [Concomitant]
     Active Substance: RASAGILINE MESYLATE
  3. VITAMIN B6 [Concomitant]
     Active Substance: PYRIDOXINE HYDROCHLORIDE
  4. VITAMIN B6 [Concomitant]
     Active Substance: PYRIDOXINE HYDROCHLORIDE
  5. VITAMIN C [Concomitant]
     Active Substance: ASCORBIC ACID
  6. VITAMIN C [Concomitant]
     Active Substance: ASCORBIC ACID
  7. VITAMIN B12 [Concomitant]
     Active Substance: CYANOCOBALAMIN
  8. MINERALS\VITAMINS [Concomitant]
     Active Substance: MINERALS\VITAMINS
  9. IRBESARTAN [Concomitant]
     Active Substance: IRBESARTAN
  10. GEMTESA [Concomitant]
     Active Substance: VIBEGRON
  11. REFRESH OPTIVE MEGA-3 [Concomitant]
     Active Substance: CARBOXYMETHYLCELLULOSE SODIUM\GLYCERIN\POLYSORBATE 80
  12. AVAPRO [Concomitant]
     Active Substance: IRBESARTAN
  13. OMEPRAZOLE [Concomitant]
     Active Substance: OMEPRAZOLE
  14. VITAMIN D3 [Concomitant]
     Active Substance: CHOLECALCIFEROL
  15. NIACIN [Concomitant]
     Active Substance: NIACIN
  16. FOLIC ACID [Concomitant]
     Active Substance: FOLIC ACID
  17. RYTARY [Concomitant]
     Active Substance: CARBIDOPA\LEVODOPA
  18. AZILECT [Concomitant]
     Active Substance: RASAGILINE MESYLATE
  19. VITAMIN B1 [Concomitant]
     Active Substance: THIAMINE HYDROCHLORIDE
  20. IRON [Concomitant]
     Active Substance: IRON
  21. MAGNESIUM [Concomitant]
     Active Substance: MAGNESIUM

REACTIONS (3)
  - Anxiety [Unknown]
  - Sleep disorder [Unknown]
  - Pollakiuria [Unknown]
